FAERS Safety Report 10204089 (Version 1)
Quarter: 2014Q2

REPORT INFORMATION
  Report Type: Spontaneous
  Country: FR (occurrence: FR)
  Receive Date: 20140529
  Receipt Date: 20140529
  Transmission Date: 20141212
  Serious: Yes (Hospitalization)
  Sender: FDA-Public Use
  Company Number: FR-JNJFOC-20140515707

PATIENT
  Age: 25 Year
  Sex: Female

DRUGS (4)
  1. REMICADE [Suspect]
     Indication: CROHN^S DISEASE
     Dosage: 6TH INFUSION
     Route: 042
     Dates: start: 20140305, end: 20140305
  2. REMICADE [Suspect]
     Indication: CROHN^S DISEASE
     Dosage: AT THE TIME OF THE REPORT THE DOSE WAS 50MG/KG
     Route: 042
     Dates: start: 201309
  3. PENTASA [Suspect]
     Indication: PRODUCT USED FOR UNKNOWN INDICATION
     Route: 048
     Dates: start: 20140305
  4. SOLU-MEDROL [Concomitant]
     Route: 065

REACTIONS (2)
  - Varicella [Recovered/Resolved]
  - Cystitis [Unknown]
